FAERS Safety Report 6122079-1 (Version None)
Quarter: 2009Q1

REPORT INFORMATION
  Report Type: 
  Country: None (occurrence: None)
  Receive Date: 20090316
  Receipt Date: 20090316
  Transmission Date: 20090719
  Serious: Yes (Hospitalization)
  Sender: FDA-Public Use
  Company Number: None

PATIENT
  Age: 69 Year
  Sex: Male
  Weight: 88 kg

DRUGS (10)
  1. REVLIMID [Suspect]
     Indication: MULTIPLE MYELOMA
     Dosage: 10 MG DAILY PO, 21 DAY CYCLE
     Route: 048
  2. LEVOXYL [Concomitant]
  3. TOPROL-XL [Concomitant]
  4. PACERONE [Concomitant]
  5. LASIX [Concomitant]
  6. COUMADIN [Concomitant]
  7. VELCADE [Concomitant]
  8. DEXAMETHASONE TAB [Concomitant]
  9. CYTOXAN [Concomitant]
  10. ZOMETA [Concomitant]

REACTIONS (2)
  - CELLULITIS [None]
  - DEEP VEIN THROMBOSIS [None]
